FAERS Safety Report 7826483-2 (Version None)
Quarter: 2011Q4

REPORT INFORMATION
  Report Type: 
  Country: None (occurrence: None)
  Receive Date: 20111011
  Receipt Date: 20110930
  Transmission Date: 20120403
  Serious: Yes (Other)
  Sender: FDA-Public Use
  Company Number: AEUSA201100265

PATIENT
  Age: 35 Year
  Sex: Female

DRUGS (15)
  1. ALBUTEROL [Concomitant]
  2. LORTAB [Concomitant]
  3. TENEX [Concomitant]
  4. COMPAZINE /00013304/ [Concomitant]
  5. ENALAPRIL MALEATE [Concomitant]
  6. LOVENOX [Concomitant]
  7. NEURONTIN [Concomitant]
  8. ADVAIR DISKUS 100/50 [Concomitant]
  9. EFFEXOR XR [Concomitant]
  10. XOLAIR [Concomitant]
  11. THROMBATE III [Suspect]
     Indication: ANTITHROMBIN III DEFICIENCY
     Dosage: 7332 IU;QW;IV
     Route: 042
     Dates: start: 20090101
  12. DYAZIDE [Concomitant]
  13. PREVACID [Concomitant]
  14. COREG [Concomitant]
  15. TESSALON [Concomitant]

REACTIONS (2)
  - VISUAL IMPAIRMENT [None]
  - NERVOUS SYSTEM DISORDER [None]
